FAERS Safety Report 23848569 (Version 1)
Quarter: 2024Q2

REPORT INFORMATION
  Report Type: Other
  Country: DE (occurrence: None)
  Receive Date: 20240513
  Receipt Date: 20240513
  Transmission Date: 20240715
  Serious: No
  Sender: FDA-Public Use
  Company Number: DE-ROCHE-3341055

PATIENT
  Age: 41 Year
  Sex: Female

DRUGS (30)
  1. OCRELIZUMAB [Suspect]
     Active Substance: OCRELIZUMAB
     Indication: Relapsing multiple sclerosis
     Dosage: DOSE FREQUENCY: ONCE
     Route: 042
     Dates: start: 20220225
  2. OCRELIZUMAB [Suspect]
     Active Substance: OCRELIZUMAB
     Dosage: DOSE FREQUENCY: ONCE
     Route: 042
     Dates: start: 20221021
  3. PRIVIGEN [Concomitant]
     Active Substance: HUMAN IMMUNOGLOBULIN G
     Dosage: DOSE: 20?DOSE FREQUENCY: OTHER
     Route: 042
     Dates: start: 20230512, end: 20230512
  4. PRIVIGEN [Concomitant]
     Active Substance: HUMAN IMMUNOGLOBULIN G
     Dosage: DOSE: 20?DOSE FREQUENCY: OTHER
     Route: 042
     Dates: start: 20230704, end: 20230704
  5. PRIVIGEN [Concomitant]
     Active Substance: HUMAN IMMUNOGLOBULIN G
     Dosage: DOSE: 20?DOSE FREQUENCY: OTHER
     Route: 042
     Dates: start: 20240216, end: 20240216
  6. PROPIONIC ACID [Concomitant]
     Active Substance: PROPIONIC ACID
     Indication: Prophylaxis
     Dosage: DOSE: 500?DOSE FREQUENCY: BID (TWICE A DAY)
     Route: 048
     Dates: start: 2021
  7. VIGANTOL [Concomitant]
     Indication: Prophylaxis
     Dosage: DOSE: 20000?DOSE FREQUENCY: QS (EVERY WEEK)
     Route: 048
     Dates: start: 2011
  8. TAMSULOSIN [Concomitant]
     Active Substance: TAMSULOSIN
     Dosage: DOSE: 0.4?DOSE FREQUENCY: QD (EVERY DAY)
     Route: 048
     Dates: start: 2006
  9. LEVOTHYROXINE SODIUM\POTASSIUM IODIDE [Concomitant]
     Active Substance: LEVOTHYROXINE SODIUM\POTASSIUM IODIDE
     Indication: Hypothyroidism
     Dosage: DOSE: 50?DOSE FREQUENCY: QD (EVERY DAY)
     Route: 048
     Dates: start: 2000
  10. OFLOXACIN [Concomitant]
     Active Substance: OFLOXACIN
     Indication: Urinary tract infection bacterial
     Dosage: DOSE: 200?DOSE FREQUENCY: BID (TWICE A DAY)
     Route: 048
     Dates: start: 20220221, end: 20220223
  11. MAGNESIUM [Concomitant]
     Active Substance: MAGNESIUM
     Indication: Prophylaxis
     Dosage: DOSE: 40?DOSE FREQUENCY: PRN (AS NEEDED)
     Route: 048
     Dates: start: 2021
  12. AMANTADINE [Concomitant]
     Active Substance: AMANTADINE
     Dosage: DOSE: 100?DOSE FREQUENCY: PRN (AS NEEDED)
     Route: 048
     Dates: start: 201806
  13. ACETAMINOPHEN [Concomitant]
     Active Substance: ACETAMINOPHEN
     Dosage: DOSE FREQUENCY: ONCE
     Route: 048
     Dates: start: 20220225, end: 20220225
  14. ACETAMINOPHEN [Concomitant]
     Active Substance: ACETAMINOPHEN
     Dosage: DOSE FREQUENCY: ONCE
     Route: 048
     Dates: start: 20220311, end: 20220311
  15. ACETAMINOPHEN [Concomitant]
     Active Substance: ACETAMINOPHEN
     Dosage: DOSE FREQUENCY: ONCE
     Route: 048
     Dates: start: 20221021, end: 20221021
  16. ACETAMINOPHEN [Concomitant]
     Active Substance: ACETAMINOPHEN
     Dosage: DOSE FREQUENCY: ONCE
     Route: 048
     Dates: start: 20230427, end: 20230427
  17. ACETAMINOPHEN [Concomitant]
     Active Substance: ACETAMINOPHEN
     Dosage: DOSE FREQUENCY: ONCE
     Route: 048
     Dates: start: 20231030, end: 20231030
  18. ACETAMINOPHEN [Concomitant]
     Active Substance: ACETAMINOPHEN
     Dosage: DOSE FREQUENCY: ONCE
     Route: 048
     Dates: start: 20240508, end: 20240508
  19. CLEMASTINE FUMARATE [Concomitant]
     Active Substance: CLEMASTINE FUMARATE
     Dosage: DOSE FREQUENCY: ONCE
     Route: 042
     Dates: start: 20220225, end: 20220225
  20. CLEMASTINE FUMARATE [Concomitant]
     Active Substance: CLEMASTINE FUMARATE
     Dosage: DOSE FREQUENCY: ONCE
     Route: 042
     Dates: start: 20220311, end: 20220311
  21. CLEMASTINE FUMARATE [Concomitant]
     Active Substance: CLEMASTINE FUMARATE
     Dosage: DOSE FREQUENCY: ONCE
     Route: 042
     Dates: start: 20221021, end: 20221021
  22. CLEMASTINE FUMARATE [Concomitant]
     Active Substance: CLEMASTINE FUMARATE
     Dosage: DOSE FREQUENCY: ONCE
     Route: 042
     Dates: start: 20230427, end: 20230427
  23. CLEMASTINE FUMARATE [Concomitant]
     Active Substance: CLEMASTINE FUMARATE
     Dosage: DOSE FREQUENCY: ONCE
     Route: 042
     Dates: start: 20240508, end: 20240508
  24. CLEMASTINE FUMARATE [Concomitant]
     Active Substance: CLEMASTINE FUMARATE
     Dosage: DOSE FREQUENCY: ONCE
     Route: 042
     Dates: start: 20231030, end: 20240508
  25. METHYLPREDNISOLONE [Concomitant]
     Active Substance: METHYLPREDNISOLONE
     Dosage: DOSE FREQUENCY: ONCE
     Route: 042
     Dates: start: 20220225, end: 20220225
  26. METHYLPREDNISOLONE [Concomitant]
     Active Substance: METHYLPREDNISOLONE
     Dosage: DOSE FREQUENCY: ONCE
     Route: 042
     Dates: start: 20220311, end: 20220311
  27. METHYLPREDNISOLONE [Concomitant]
     Active Substance: METHYLPREDNISOLONE
     Dosage: DOSE FREQUENCY: ONCE
     Route: 042
     Dates: start: 20221021, end: 20221021
  28. METHYLPREDNISOLONE [Concomitant]
     Active Substance: METHYLPREDNISOLONE
     Dosage: DOSE FREQUENCY: ONCE
     Route: 042
     Dates: start: 20230427, end: 20230427
  29. METHYLPREDNISOLONE [Concomitant]
     Active Substance: METHYLPREDNISOLONE
     Dosage: DOSE FREQUENCY: ONCE
     Route: 042
     Dates: start: 20231030, end: 20231030
  30. METHYLPREDNISOLONE [Concomitant]
     Active Substance: METHYLPREDNISOLONE
     Dosage: DOSE FREQUENCY: ONCE
     Route: 042
     Dates: start: 20240508, end: 20240508

REACTIONS (3)
  - Urinary tract infection [Recovered/Resolved]
  - Oral herpes [Recovered/Resolved]
  - Urinary tract infection bacterial [Recovered/Resolved]

NARRATIVE: CASE EVENT DATE: 20221028
